FAERS Safety Report 17158847 (Version 1)
Quarter: 2019Q4

REPORT INFORMATION
  Report Type: Spontaneous
  Country: ES (occurrence: ES)
  Receive Date: 20191216
  Receipt Date: 20191216
  Transmission Date: 20200122
  Serious: Yes (Hospitalization)
  Sender: FDA-Public Use
  Company Number: ES-MYLANLABS-2019M1123923

PATIENT
  Age: 77 Year
  Sex: Male

DRUGS (6)
  1. APOCARD 100 MG, COMPRIMIDOS [Suspect]
     Active Substance: FLECAINIDE ACETATE
     Dosage: 1 DOSAGE FORM, QD
     Dates: end: 201909
  2. CLOPIDOGREL [Suspect]
     Active Substance: CLOPIDOGREL BISULFATE
     Indication: ANTICOAGULANT THERAPY
     Dosage: UNK
  3. ENALAPRIL [Concomitant]
     Active Substance: ENALAPRIL
     Indication: HYPERTENSION
     Dosage: UNK
  4. LIVAZO [Concomitant]
     Active Substance: PITAVASTATIN CALCIUM
     Indication: BLOOD CHOLESTEROL
     Dosage: UNK
  5. APOCARD 100 MG, COMPRIMIDOS [Suspect]
     Active Substance: FLECAINIDE ACETATE
     Indication: CARDIAC FAILURE
     Dosage: 1 DOSAGE FORM, QD
     Dates: start: 1992, end: 201812
  6. TRANGOREX [Suspect]
     Active Substance: AMIODARONE HYDROCHLORIDE
     Indication: PRODUCT USED FOR UNKNOWN INDICATION
     Dosage: UNK
     Dates: end: 201909

REACTIONS (10)
  - Myalgia [Recovering/Resolving]
  - Lung disorder [Recovered/Resolved]
  - Gait disturbance [Recovering/Resolving]
  - Tremor [Recovering/Resolving]
  - Musculoskeletal stiffness [Recovering/Resolving]
  - Dizziness [Recovering/Resolving]
  - Amnesia [Recovering/Resolving]
  - Syncope [Recovered/Resolved]
  - Arthropathy [Recovering/Resolving]
  - Scoliosis [Unknown]

NARRATIVE: CASE EVENT DATE: 2016
